FAERS Safety Report 5807221-1 (Version None)
Quarter: 2008Q3

REPORT INFORMATION
  Report Type: 
  Country: None (occurrence: None)
  Receive Date: 20080711
  Receipt Date: 20080709
  Transmission Date: 20090109
  Serious: Yes (Other)
  Sender: FDA-Public Use
  Company Number: B0528616A

PATIENT
  Age: 86 Year
  Sex: Male

DRUGS (1)
  1. LAMICTAL [Suspect]
     Indication: BIPOLAR DISORDER
     Route: 048
     Dates: start: 20080501, end: 20080501

REACTIONS (3)
  - CATARACT [None]
  - COORDINATION ABNORMAL [None]
  - VISION BLURRED [None]
